FAERS Safety Report 5392128-7 (Version None)
Quarter: 2007Q3

REPORT INFORMATION
  Report Type: 
  Country: None (occurrence: None)
  Receive Date: 20070718
  Receipt Date: 20070718
  Transmission Date: 20080115
  Serious: Yes (Death)
  Sender: FDA-Public Use
  Company Number: None

PATIENT
  Age: 88 Year
  Sex: Female
  Weight: 72 kg

DRUGS (1)
  1. FONDAPARINUX SODIUM -ARIXTRA-   7.5 MG   GLAXO SMITH KLINE [Suspect]
     Indication: DEEP VEIN THROMBOSIS
     Dosage: 7.5 MG DAILY SQ
     Route: 058
     Dates: start: 20070615, end: 20070701

REACTIONS (1)
  - INTRA-ABDOMINAL HAEMORRHAGE [None]
